FAERS Safety Report 13336744 (Version 2)
Quarter: 2017Q1

REPORT INFORMATION
  Report Type: Report from Study
  Country: US (occurrence: US)
  Receive Date: 20170314
  Receipt Date: 20170329
  Transmission Date: 20170428
  Serious: Yes (Other)
  Sender: FDA-Public Use
  Company Number: US-JAZZ-2017-US-001732

PATIENT
  Age: 54 Year
  Sex: Male

DRUGS (19)
  1. LAMOTRIGINE. [Concomitant]
     Active Substance: LAMOTRIGINE
  2. XYREM [Suspect]
     Active Substance: SODIUM OXYBATE
     Indication: NARCOLEPSY
     Dosage: 2.25 G, BID
     Route: 048
     Dates: start: 200704, end: 201009
  3. ATORVASTATIN                       /01326102/ [Concomitant]
     Active Substance: ATORVASTATIN
  4. SAW PALMETTO                       /00833501/ [Concomitant]
     Active Substance: SAW PALMETTO
  5. XYREM [Suspect]
     Active Substance: SODIUM OXYBATE
     Dosage: UNK
  6. LAMICTAL [Concomitant]
     Active Substance: LAMOTRIGINE
  7. SIMVASTATIN. [Concomitant]
     Active Substance: SIMVASTATIN
  8. FLUOXETINE HCL [Concomitant]
     Active Substance: FLUOXETINE HYDROCHLORIDE
  9. DEXEDRINE [Concomitant]
     Active Substance: DEXTROAMPHETAMINE SULFATE
  10. ASPIRIN                            /00002701/ [Concomitant]
     Active Substance: ASPIRIN
  11. AMLODIPINE BESYLATE. [Concomitant]
     Active Substance: AMLODIPINE BESYLATE
  12. LISINOPRIL. [Concomitant]
     Active Substance: LISINOPRIL
  13. XYREM [Suspect]
     Active Substance: SODIUM OXYBATE
     Indication: CATAPLEXY
     Dosage: DOSE ADJUSTMENT
     Route: 048
     Dates: start: 201010, end: 2016
  14. XYREM [Suspect]
     Active Substance: SODIUM OXYBATE
     Dosage: 5 G, QD
     Route: 048
     Dates: start: 201609
  15. NUVIGIL [Concomitant]
     Active Substance: ARMODAFINIL
  16. BACLOFEN. [Concomitant]
     Active Substance: BACLOFEN
  17. PROPRANOLOL [Concomitant]
     Active Substance: PROPRANOLOL HYDROCHLORIDE
  18. PRIMIDONE. [Concomitant]
     Active Substance: PRIMIDONE
  19. XYREM [Suspect]
     Active Substance: SODIUM OXYBATE
     Dosage: 4.5 G, QD
     Route: 048
     Dates: start: 201609

REACTIONS (4)
  - Sleep apnoea syndrome [Recovering/Resolving]
  - Pre-existing condition improved [Unknown]
  - Therapeutic response unexpected [Unknown]
  - Constipation [Not Recovered/Not Resolved]

NARRATIVE: CASE EVENT DATE: 2014
